APPROVED DRUG PRODUCT: CRIXIVAN
Active Ingredient: INDINAVIR SULFATE
Strength: EQ 400MG BASE
Dosage Form/Route: CAPSULE;ORAL
Application: N020685 | Product #001
Applicant: MERCK SHARP AND DOHME CORP
Approved: Mar 13, 1996 | RLD: Yes | RS: No | Type: DISCN